FAERS Safety Report 18617570 (Version 2)
Quarter: 2020Q4

REPORT INFORMATION
  Report Type: Spontaneous
  Country: JP (occurrence: JP)
  Receive Date: 20201215
  Receipt Date: 20201218
  Transmission Date: 20210114
  Serious: Yes (Other)
  Sender: FDA-Public Use
  Company Number: JP-ACCORD-211133

PATIENT
  Age: 59 Year
  Sex: Female
  Weight: 50 kg

DRUGS (3)
  1. BEVACIZUMAB. [Suspect]
     Active Substance: BEVACIZUMAB
     Indication: BREAST CANCER
     Dosage: 4 CYCLES, DAY 1, 15
  2. PACLITAXEL/PACLITAXEL LIPOSOME [Suspect]
     Active Substance: PACLITAXEL
     Indication: BREAST CANCER
     Dosage: 4 CYCLES, DAY 1, 15
  3. ZOLEDRONIC ACID [Concomitant]
     Active Substance: ZOLEDRONIC ACID
     Indication: SUPPORTIVE CARE

REACTIONS (2)
  - Radiation oesophagitis [Recovering/Resolving]
  - Oesophageal stenosis [Recovering/Resolving]
